FAERS Safety Report 21984385 (Version 3)
Quarter: 2023Q1

REPORT INFORMATION
  Report Type: Other
  Country: RO (occurrence: None)
  Receive Date: 20230213
  Receipt Date: 20230223
  Transmission Date: 20230418
  Serious: Yes (Death, Hospitalization)
  Sender: FDA-Public Use
  Company Number: RO-ROCHE-3282529

PATIENT
  Age: 65 Year
  Sex: Male
  Weight: 100 kg

DRUGS (20)
  1. ATEZOLIZUMAB [Suspect]
     Active Substance: ATEZOLIZUMAB
     Indication: Hepatocellular carcinoma
     Dosage: ON 18/JAN/2023, MOST RECENT DOSE OF 1200 MG OF ATEZOLIZUMAB WAS ADMINISTERED PRIOR TO EVENT MESENTER
     Route: 041
     Dates: start: 20221228
  2. BEVACIZUMAB [Suspect]
     Active Substance: BEVACIZUMAB
     Indication: Hepatocellular carcinoma
     Route: 065
     Dates: start: 20221228
  3. GLICLAZIDE [Concomitant]
     Active Substance: GLICLAZIDE
  4. URSODIOL [Concomitant]
     Active Substance: URSODIOL
  5. PROPRANOLOL [Concomitant]
     Active Substance: PROPRANOLOL HYDROCHLORIDE
  6. RIFAXIMIN [Concomitant]
     Active Substance: RIFAXIMIN
  7. ESSENTIALE FORTE [Concomitant]
  8. DIUREX (ROMANIA) [Concomitant]
     Dosage: YES
  9. CONTROLOC [Concomitant]
     Active Substance: PANTOPRAZOLE SODIUM
  10. DEXAMETHASONE [Concomitant]
     Active Substance: DEXAMETHASONE
     Dosage: YES
     Dates: start: 20230118, end: 20230123
  11. FERROUS SULFATE [Concomitant]
     Active Substance: FERROUS SULFATE
     Dates: start: 20230118
  12. AMINOSTERIL N HEPA [Concomitant]
  13. FUROSEMIDE [Concomitant]
     Active Substance: FUROSEMIDE
  14. MEROPENEM [Concomitant]
     Active Substance: MEROPENEM
  15. VANCOMYCIN [Concomitant]
     Active Substance: VANCOMYCIN
  16. FLUCONAZOLE [Concomitant]
     Active Substance: FLUCONAZOLE
  17. ALBUMIN HUMAN [Concomitant]
     Active Substance: ALBUMIN HUMAN
  18. ALGIFEN (ROMANIA) [Concomitant]
  19. ENOXAPARIN SODIUM [Concomitant]
     Active Substance: ENOXAPARIN SODIUM
  20. CER [Concomitant]

REACTIONS (1)
  - Intestinal ischaemia [Fatal]

NARRATIVE: CASE EVENT DATE: 20230129
